FAERS Safety Report 23490341 (Version 1)
Quarter: 2024Q1

REPORT INFORMATION
  Report Type: Spontaneous
  Country: US (occurrence: None)
  Receive Date: 20240206
  Receipt Date: 20240206
  Transmission Date: 20240410
  Serious: No
  Sender: FDA-Public Use
  Company Number: US-ROCHE-3465430

PATIENT
  Age: 9 Year
  Sex: Male

DRUGS (4)
  1. NUTROPIN AQ [Suspect]
     Active Substance: SOMATROPIN
     Indication: Hypopituitarism
     Route: 058
     Dates: start: 202311
  2. NUTROPIN AQ [Suspect]
     Active Substance: SOMATROPIN
  3. NUTROPIN AQ [Suspect]
     Active Substance: SOMATROPIN
     Indication: Growth hormone deficiency
  4. NUTROPIN AQ [Suspect]
     Active Substance: SOMATROPIN

REACTIONS (7)
  - Underdose [Unknown]
  - Blister [Unknown]
  - Wrong technique in product usage process [Unknown]
  - Device issue [Unknown]
  - Drug delivery system malfunction [Unknown]
  - Pain [Unknown]
  - Product use complaint [Unknown]

NARRATIVE: CASE EVENT DATE: 20231126
